FAERS Safety Report 7471737-5 (Version None)
Quarter: 2011Q2

REPORT INFORMATION
  Report Type: 
  Country: None (occurrence: None)
  Receive Date: 20110511
  Receipt Date: 20100315
  Transmission Date: 20111010
  Serious: No
  Sender: FDA-Public Use
  Company Number: A0850228A

PATIENT
  Age: 77 Year
  Sex: Female

DRUGS (6)
  1. XELODA [Concomitant]
  2. LISINOPRIL [Concomitant]
  3. CHEMOTHERAPY [Concomitant]
  4. PEPCID [Concomitant]
  5. ASPIRIN [Concomitant]
  6. TYKERB [Suspect]
     Indication: BREAST CANCER
     Dosage: 250MG PER DAY
     Route: 048
     Dates: start: 20100210

REACTIONS (5)
  - LACERATION [None]
  - RASH [None]
  - ACNE [None]
  - DIARRHOEA [None]
  - LIP DRY [None]
